FAERS Safety Report 11395665 (Version 1)
Quarter: 2015Q3

REPORT INFORMATION
  Report Type: Spontaneous
  Country: US (occurrence: None)
  Receive Date: 20150818
  Receipt Date: 20150818
  Transmission Date: 20151125
  Serious: No
  Sender: FDA-Public Use
  Company Number: None

PATIENT
  Age: 72 Year
  Sex: Male
  Weight: 76.2 kg

DRUGS (5)
  1. FLOMAX (TAMSULOSIN) [Concomitant]
  2. LEVOFLOXACIN. [Suspect]
     Active Substance: LEVOFLOXACIN
     Indication: URINARY TRACT INFECTION
     Dosage: 1 X A DAY X 4 DAYS BY MOUTH
     Route: 048
     Dates: start: 20150729, end: 20150801
  3. CITRUCIL [Concomitant]
  4. MELALEUCA [Concomitant]
     Active Substance: MELALEUCA QUINQUENERVIA POLLEN
  5. COLLACE [Concomitant]

REACTIONS (2)
  - Tendon discomfort [None]
  - Tendon pain [None]

NARRATIVE: CASE EVENT DATE: 20150729
